FAERS Safety Report 6590398-0 (Version None)
Quarter: 2010Q1

REPORT INFORMATION
  Report Type: 
  Country: None (occurrence: None)
  Receive Date: 20100219
  Receipt Date: 20100202
  Transmission Date: 20100710
  Serious: Yes (Hospitalization)
  Sender: FDA-Public Use
  Company Number: US-ROCHE-681234

PATIENT
  Sex: Male
  Weight: 93.9 kg

DRUGS (15)
  1. BEVACIZUMAB [Suspect]
     Indication: NON-SMALL CELL LUNG CANCER
     Dosage: LAST DOSE OF AVASTIN PRIOR TO ONSET OF EVENT 16 DECEMBER 2009
     Route: 042
     Dates: start: 20090520, end: 20091216
  2. AMBIEN [Concomitant]
     Dosage: FREQUENCY:  AT BEDTIME.
     Route: 048
  3. CHANTIX [Concomitant]
     Route: 048
  4. CLONIDINE [Concomitant]
     Dosage: FREQUENCY: ONE EVERY NIGHT.
     Route: 048
  5. DYNACIRC [Concomitant]
     Route: 048
  6. LYRICA [Concomitant]
     Route: 048
  7. MULTIVITAMIN [Concomitant]
     Dosage: DRUG NAME OCUVITE LUTEIN VITAMIN
     Route: 048
  8. OMEPRAZOLE [Concomitant]
  9. OXYCODONE HCL [Concomitant]
     Dosage: DOSE: 5 MG AND 30 MG INSTANT RELEASE.
  10. OXYCODONE HCL [Concomitant]
     Dosage: FREQUENCY AS NEEDED.
     Route: 048
  11. OXYCONTIN [Concomitant]
     Route: 048
  12. SINGULAIR [Concomitant]
     Dosage: FREQUENCY: EVERY NIGHT
     Route: 054
  13. SPECTRAVITE [Concomitant]
     Dosage: FREQUENCY:  ONCE A DAY
     Route: 048
  14. WELLBUTRIN SR [Concomitant]
     Dosage: FREQUENCY:  ONCE A DAY
     Route: 048
  15. ZOMETA [Concomitant]
     Dosage: DOSE:  4 MG/5ML SOLUTION
     Route: 042
     Dates: start: 20090215, end: 20091212

REACTIONS (2)
  - BACK PAIN [None]
  - DISEASE PROGRESSION [None]
